FAERS Safety Report 17660485 (Version 1)
Quarter: 2020Q2

REPORT INFORMATION
  Report Type: Spontaneous
  Country: US (occurrence: US)
  Receive Date: 20200413
  Receipt Date: 20200413
  Transmission Date: 20200713
  Serious: No
  Sender: FDA-Public Use
  Company Number: US-PFIZER INC-2020150142

PATIENT
  Age: 92 Year
  Sex: Female
  Weight: 104.3 kg

DRUGS (1)
  1. CHANTIX [Suspect]
     Active Substance: VARENICLINE TARTRATE
     Indication: SMOKING CESSATION THERAPY
     Dosage: 1 MG, 2X/DAY (IN MORNING AND NIGHT)
     Route: 048

REACTIONS (2)
  - Malaise [Unknown]
  - Nervousness [Unknown]
